FAERS Safety Report 9644276 (Version 1)
Quarter: 2013Q4

REPORT INFORMATION
  Report Type: Report from Study
  Country: US (occurrence: US)
  Receive Date: 20131025
  Receipt Date: 20131025
  Transmission Date: 20140711
  Serious: Yes (Death)
  Sender: FDA-Public Use
  Company Number: US-ROCHE-1294180

PATIENT
  Age: 88 Year
  Sex: Male

DRUGS (1)
  1. XELODA [Suspect]
     Indication: COLON CANCER
     Dosage: EVERY AM AND PM
     Route: 048
     Dates: start: 20130918, end: 20131020

REACTIONS (1)
  - Death [Fatal]
